FAERS Safety Report 16069460 (Version 1)
Quarter: 2019Q1

REPORT INFORMATION
  Report Type: Spontaneous
  Country: JP (occurrence: JP)
  Receive Date: 20190313
  Receipt Date: 20190313
  Transmission Date: 20190418
  Serious: Yes (Death, Other)
  Sender: FDA-Public Use
  Company Number: JP-SA-2019SA069357

PATIENT
  Age: 60 Year
  Sex: Female

DRUGS (5)
  1. FLUOROURACIL. [Suspect]
     Active Substance: FLUOROURACIL
     Indication: SQUAMOUS CELL CARCINOMA
  2. PACLITAXEL. [Suspect]
     Active Substance: PACLITAXEL
     Dosage: 800 MG/M2, TOTAL
  3. PACLITAXEL. [Suspect]
     Active Substance: PACLITAXEL
     Dosage: 80 MG/M2, QIW. ADMINISTERED WEEKLY FOR 3 OUT OF 4 WEEKS
  4. DOCETAXEL. [Suspect]
     Active Substance: DOCETAXEL
     Indication: SQUAMOUS CELL CARCINOMA
     Dosage: 40 MG/M2, BIW
  5. CISPLATIN. [Suspect]
     Active Substance: CISPLATIN
     Indication: SQUAMOUS CELL CARCINOMA
     Dosage: UNK

REACTIONS (6)
  - Disease progression [Unknown]
  - Metastases to central nervous system [Fatal]
  - Metastases to lung [Unknown]
  - Angiosarcoma [Unknown]
  - Drug ineffective [Unknown]
  - Therapy partial responder [Unknown]
